FAERS Safety Report 10399861 (Version 1)
Quarter: 2014Q3

REPORT INFORMATION
  Report Type: Spontaneous
  Country: CA (occurrence: CA)
  Receive Date: 20140821
  Receipt Date: 20140821
  Transmission Date: 20150326
  Serious: Yes (Other)
  Sender: FDA-Public Use
  Company Number: CA-GLAXOSMITHKLINE-A1083630A

PATIENT
  Sex: Female

DRUGS (1)
  1. TAFINLAR [Suspect]
     Active Substance: DABRAFENIB MESYLATE
     Indication: METASTATIC MALIGNANT MELANOMA
     Dosage: 300MG PER DAY
     Route: 065

REACTIONS (12)
  - Malignant melanoma [Unknown]
  - Nausea [Unknown]
  - Pain in extremity [Unknown]
  - Acrochordon [Unknown]
  - Rash erythematous [Unknown]
  - Skin exfoliation [Unknown]
  - Alopecia [Unknown]
  - Malaise [Unknown]
  - Skin hypertrophy [Unknown]
  - Skin discolouration [Unknown]
  - Dry skin [Unknown]
  - Decreased appetite [Recovered/Resolved]
